FAERS Safety Report 9458309 (Version 1)
Quarter: 2013Q3

REPORT INFORMATION
  Report Type: Spontaneous
  Country: US (occurrence: None)
  Receive Date: 20130812
  Receipt Date: 20130812
  Transmission Date: 20140515
  Serious: Yes (Other)
  Sender: FDA-Public Use
  Company Number: 54973 AE1465

PATIENT
  Age: 6 Month
  Sex: 0

DRUGS (2)
  1. HYLAND^S [Suspect]
     Indication: STRESS
  2. HYLAND^S [Suspect]
     Indication: TENSION

REACTIONS (2)
  - Maternal drugs affecting foetus [None]
  - Posture abnormal [None]
